FAERS Safety Report 21479812 (Version 1)
Quarter: 2022Q4

REPORT INFORMATION
  Report Type: Spontaneous
  Country: US (occurrence: None)
  Receive Date: 20221018
  Receipt Date: 20221018
  Transmission Date: 20230113
  Serious: Yes (Death)
  Sender: FDA-Public Use
  Company Number: None

PATIENT
  Age: 72 Year
  Sex: Male

DRUGS (1)
  1. PROLIA [Suspect]
     Active Substance: DENOSUMAB
     Dosage: 60MG/ML Q 6 MONTH SUBCUTANEOUS
     Route: 058
     Dates: start: 20210402

REACTIONS (1)
  - Death [None]

NARRATIVE: CASE EVENT DATE: 20221017
